FAERS Safety Report 4916004-6 (Version None)
Quarter: 2006Q1

REPORT INFORMATION
  Report Type: 
  Country: None (occurrence: None)
  Receive Date: 20060217
  Receipt Date: 20060209
  Transmission Date: 20060701
  Serious: Yes (Congenital Anomaly)
  Sender: FDA-Public Use
  Company Number: FR-ABBOTT-06P-056-0324524-00

PATIENT
  Age: 0 Day

DRUGS (1)
  1. DEPAKENE [Suspect]
     Indication: DRUG EXPOSURE DURING PREGNANCY

REACTIONS (4)
  - ATRIAL SEPTAL DEFECT [None]
  - FACIAL DYSMORPHISM [None]
  - HYPOSPADIAS [None]
  - PREMATURE LABOUR [None]
